FAERS Safety Report 23518572 (Version 1)
Quarter: 2024Q1

REPORT INFORMATION
  Report Type: Spontaneous
  Country: US (occurrence: US)
  Receive Date: 20240213
  Receipt Date: 20240213
  Transmission Date: 20240410
  Serious: No
  Sender: FDA-Public Use
  Company Number: US-MYLANLABS-2024M1011021

PATIENT
  Sex: Female

DRUGS (1)
  1. XANAX [Suspect]
     Active Substance: ALPRAZOLAM
     Indication: Anxiety
     Dosage: 8 MILLIGRAM IN THE MORNING AND EIGHT AT NIGHT
     Route: 065

REACTIONS (3)
  - Off label use [Unknown]
  - Depression [Unknown]
  - Agitation [Unknown]
